FAERS Safety Report 8742047 (Version 2)
Quarter: 2013Q1

REPORT INFORMATION
  Report Type: Spontaneous
  Country: US (occurrence: None)
  Receive Date: 20120810
  Receipt Date: 20130225
  Transmission Date: 20140127
  Serious: Yes (Hospitalization, Disabling, Other)
  Sender: FDA-Public Use
  Company Number: ACO_31350_2012

PATIENT
  Age: 55 Year
  Sex: Male
  Weight: 90.7 kg

DRUGS (4)
  1. AMPYRA [Suspect]
     Indication: GAIT DISTURBANCE
     Route: 048
     Dates: start: 2011
  2. COPAXONE [Concomitant]
  3. TYSABRI (NATALIZUMAB) [Concomitant]
  4. PRISTIQ (DESVENLAFAXINE SUCCINATE) [Concomitant]

REACTIONS (11)
  - PNEUMONIA [None]
  - DEPRESSION [None]
  - Cystitis [None]
  - Urinary retention [None]
  - Urinary tract infection [None]
  - Multiple sclerosis relapse [None]
  - Constipation [None]
  - Cognitive disorder [None]
  - Memory impairment [None]
  - Memory impairment [None]
  - Aphasia [None]
